FAERS Safety Report 19823548 (Version 1)
Quarter: 2021Q3

REPORT INFORMATION
  Report Type: Report from Study
  Country: EG (occurrence: EG)
  Receive Date: 20210913
  Receipt Date: 20210913
  Transmission Date: 20211014
  Serious: Yes (Hospitalization, Other)
  Sender: FDA-Public Use
  Company Number: NVSC2021EG202596

PATIENT
  Age: 28 Year
  Sex: Female

DRUGS (1)
  1. GILENYA [Suspect]
     Active Substance: FINGOLIMOD HYDROCHLORIDE
     Indication: MULTIPLE SCLEROSIS
     Dosage: 1 DF, QD
     Route: 048
     Dates: start: 202005

REACTIONS (18)
  - Multiple sclerosis [Recovered/Resolved]
  - Hemiplegia [Recovered/Resolved]
  - White blood cell count decreased [Unknown]
  - Multiple sclerosis [Not Recovered/Not Resolved]
  - Multiple sclerosis [Recovered/Resolved]
  - Visual impairment [Not Recovered/Not Resolved]
  - Multiple sclerosis [Recovered/Resolved]
  - Hemiplegia [Not Recovered/Not Resolved]
  - Hemiplegia [Recovered/Resolved]
  - Nausea [Not Recovered/Not Resolved]
  - Urinary retention [Recovered/Resolved]
  - Movement disorder [Not Recovered/Not Resolved]
  - Feeling abnormal [Not Recovered/Not Resolved]
  - Hemiplegia [Recovered/Resolved]
  - Optic atrophy [Not Recovered/Not Resolved]
  - Hypersomnia [Not Recovered/Not Resolved]
  - Dizziness [Not Recovered/Not Resolved]
  - Multiple sclerosis [Not Recovered/Not Resolved]

NARRATIVE: CASE EVENT DATE: 202007
